FAERS Safety Report 25487320 (Version 1)
Quarter: 2025Q2

REPORT INFORMATION
  Report Type: Report from Study
  Country: AE (occurrence: AE)
  Receive Date: 20250627
  Receipt Date: 20250627
  Transmission Date: 20250716
  Serious: Yes (Hospitalization)
  Sender: ROCHE
  Company Number: AE-ROCHE-10000241430

PATIENT
  Age: 3 Year
  Sex: Male

DRUGS (1)
  1. HEMLIBRA [Suspect]
     Active Substance: EMICIZUMAB-KXWH
     Indication: Factor VIII deficiency
     Route: 065

REACTIONS (6)
  - Subdural haemorrhage [Unknown]
  - Microcephaly [Unknown]
  - Developmental delay [Unknown]
  - Eczema [Unknown]
  - Partial seizures [Unknown]
  - Gingival bleeding [Unknown]
